FAERS Safety Report 8900245 (Version 2)
Quarter: 2012Q4

REPORT INFORMATION
  Report Type: 
  Country: US (occurrence: US)
  Receive Date: 20121109
  Receipt Date: 20121214
  Transmission Date: 20130627
  Serious: No
  Sender: FDA-Public Use
  Company Number: US-B.I. PHARMACEUTICALS,INC./RIDGEFIELD-2012-BP-27386BP

PATIENT
  Age: 62 Year
  Sex: Female
  Weight: 83 kg

DRUGS (5)
  1. COMBIVENT [Suspect]
     Indication: CHRONIC OBSTRUCTIVE PULMONARY DISEASE
     Route: 055
     Dates: start: 2006
  2. COREG [Concomitant]
     Indication: CARDIOMYOPATHY
     Dosage: 25 mg
     Route: 048
     Dates: start: 2003
  3. DIOVAN [Concomitant]
     Indication: CARDIOMYOPATHY
     Dosage: 80 mg
     Route: 048
     Dates: start: 2003
  4. FUROSEMIDE [Concomitant]
     Indication: CARDIAC FAILURE CONGESTIVE
     Dosage: 40 mg
     Route: 048
     Dates: start: 2003
  5. KLOR-CON [Concomitant]
     Indication: BLOOD POTASSIUM DECREASED
     Dosage: 10 mEq
     Route: 048
     Dates: start: 2003

REACTIONS (3)
  - Retching [Recovered/Resolved]
  - Dyspnoea [Recovered/Resolved]
  - Product quality issue [Recovered/Resolved]
